FAERS Safety Report 10027040 (Version 3)
Quarter: 2014Q2

REPORT INFORMATION
  Report Type: Spontaneous
  Country: US (occurrence: US)
  Receive Date: 20140321
  Receipt Date: 20140421
  Transmission Date: 20141212
  Serious: Yes (Other)
  Sender: FDA-Public Use
  Company Number: US-JNJFOC-20140311614

PATIENT
  Sex: Female

DRUGS (2)
  1. TYLENOL [Suspect]
     Indication: PAIN
     Route: 048
  2. REMICADE [Concomitant]
     Indication: COLITIS ULCERATIVE
     Route: 065

REACTIONS (2)
  - Systemic lupus erythematosus [Unknown]
  - Drug ineffective [Unknown]
